FAERS Safety Report 16033572 (Version 1)
Quarter: 2019Q2

REPORT INFORMATION
  Report Type: Spontaneous
  Country: US (occurrence: US)
  Receive Date: 20190304
  Receipt Date: 20190304
  Transmission Date: 20190711
  Serious: Yes (Other)
  Sender: FDA-Public Use
  Company Number: None

PATIENT
  Age: 25 Year
  Sex: Male
  Weight: 94.5 kg

DRUGS (1)
  1. ROZEREM [Suspect]
     Active Substance: RAMELTEON
     Indication: INSOMNIA
     Dosage: ?          QUANTITY:30 TABLET(S);?
     Route: 048
     Dates: start: 20190212, end: 20190222

REACTIONS (7)
  - Anxiety [None]
  - Amnesia [None]
  - Depression [None]
  - Dissociation [None]
  - Partner stress [None]
  - Disease recurrence [None]
  - Suicidal ideation [None]

NARRATIVE: CASE EVENT DATE: 20190212
